FAERS Safety Report 7694067-5 (Version None)
Quarter: 2011Q3

REPORT INFORMATION
  Report Type: 
  Country: None (occurrence: None)
  Receive Date: 20110819
  Receipt Date: 20110808
  Transmission Date: 20111222
  Serious: Yes (Other)
  Sender: FDA-Public Use
  Company Number: US-JNJFOC-20110808233

PATIENT

DRUGS (2)
  1. CLADRIBINE [Suspect]
     Indication: MANTLE CELL LYMPHOMA
     Dosage: OVER 2 HOURS ON DAYS 1-5
     Route: 065
  2. RITUXIMAB [Suspect]
     Indication: MANTLE CELL LYMPHOMA
     Dosage: THE CYCLE INTERVAL WAS 28 DAYS
     Route: 065

REACTIONS (1)
  - DELIRIUM [None]
